FAERS Safety Report 5027338-1 (Version None)
Quarter: 2006Q2

REPORT INFORMATION
  Report Type: 
  Country: None (occurrence: None)
  Receive Date: 20060501
  Receipt Date: 20060209
  Transmission Date: 20061013
  Serious: No
  Sender: FDA-Public Use
  Company Number: 2006PV008422

PATIENT
  Age: 63 Year
  Sex: Male
  Weight: 83.0083 kg

DRUGS (4)
  1. SYMLIN [Suspect]
     Indication: DIABETES MELLITUS NON-INSULIN-DEPENDENT
     Dosage: 120 MCG;TID;SC
     Route: 058
     Dates: start: 20060101
  2. HUMALOG [Concomitant]
  3. LANTUS [Concomitant]
  4. ACTOS + METFORMIN [Concomitant]

REACTIONS (1)
  - INJECTION SITE PAIN [None]
